FAERS Safety Report 4656463-X (Version None)
Quarter: 2005Q2

REPORT INFORMATION
  Report Type: 
  Country: None (occurrence: None)
  Receive Date: 20050505
  Receipt Date: 20050422
  Transmission Date: 20051028
  Serious: Yes (Death, Hospitalization)
  Sender: FDA-Public Use
  Company Number: 008-CTHAL-05040313

PATIENT
  Age: 71 Year
  Sex: Male
  Weight: 75 kg

DRUGS (2)
  1. THALIDOMIDE\ PLACEBO (CAPSULES) [Suspect]
     Indication: MULTIPLE MYELOMA
     Dosage: 200 MG, QD, ORAL
     Route: 048
     Dates: start: 20050225, end: 20050405
  2. DEXAMETHASONE [Suspect]
     Indication: MULTIPLE MYELOMA
     Dosage: 40 MG ,QD. D1-4  9-12, 17-20, ORAL
     Route: 048
     Dates: start: 20050225, end: 20050405

REACTIONS (40)
  - ABDOMINAL PAIN LOWER [None]
  - ABDOMINAL TENDERNESS [None]
  - AGITATION [None]
  - ASPIRATION [None]
  - ATELECTASIS [None]
  - AUTONOMIC NERVOUS SYSTEM IMBALANCE [None]
  - BLOOD BICARBONATE DECREASED [None]
  - BLOOD CHLORIDE INCREASED [None]
  - BLOOD CREATININE INCREASED [None]
  - BLOOD PRESSURE DECREASED [None]
  - BLOOD UREA INCREASED [None]
  - CARDIAC AMYLOIDOSIS [None]
  - CARDIAC DISORDER [None]
  - CARDIO-RESPIRATORY ARREST [None]
  - CARDIOMEGALY [None]
  - CARDIOMYOPATHY [None]
  - CLOSTRIDIUM COLITIS [None]
  - CONFUSIONAL STATE [None]
  - DEHYDRATION [None]
  - DISEASE PROGRESSION [None]
  - DRY SKIN [None]
  - ELECTROCARDIOGRAM ST SEGMENT ABNORMAL [None]
  - FAECES DISCOLOURED [None]
  - FLUID RETENTION [None]
  - GAMMOPATHY [None]
  - GENERAL PHYSICAL HEALTH DETERIORATION [None]
  - MULTIPLE MYELOMA [None]
  - NASOPHARYNGITIS [None]
  - NEUROPATHY [None]
  - OEDEMA [None]
  - PERICARDIAL EFFUSION [None]
  - PERIPHERAL SENSORIMOTOR NEUROPATHY [None]
  - PLEURAL EFFUSION [None]
  - PULMONARY CONGESTION [None]
  - RENAL AMYLOIDOSIS [None]
  - RENAL FAILURE [None]
  - RESTRICTIVE CARDIOMYOPATHY [None]
  - SEPSIS [None]
  - TROPONIN INCREASED [None]
  - URINE OUTPUT DECREASED [None]
